FAERS Safety Report 23334072 (Version 1)
Quarter: 2023Q4

REPORT INFORMATION
  Report Type: Spontaneous
  Country: FR (occurrence: FR)
  Receive Date: 20231223
  Receipt Date: 20231223
  Transmission Date: 20240110
  Serious: Yes (Death)
  Sender: FDA-Public Use
  Company Number: FR-CHEPLA-2023015906

PATIENT
  Age: 54 Year
  Sex: Female

DRUGS (6)
  1. CAPECITABINE [Suspect]
     Active Substance: CAPECITABINE
     Indication: Breast cancer
     Route: 048
     Dates: start: 202111
  2. TUCATINIB [Suspect]
     Active Substance: TUCATINIB
     Indication: Breast cancer
     Route: 048
     Dates: start: 202111
  3. TRASTUZUMAB [Suspect]
     Active Substance: TRASTUZUMAB
     Indication: Breast cancer
     Route: 042
     Dates: start: 202111
  4. PERTUZUMAB [Suspect]
     Active Substance: PERTUZUMAB
     Indication: Breast cancer
     Route: 042
     Dates: start: 202012
  5. PACLITAXEL [Suspect]
     Active Substance: PACLITAXEL
     Indication: Breast cancer
     Route: 042
     Dates: start: 202012
  6. LETROZOLE [Concomitant]
     Active Substance: LETROZOLE
     Indication: Product used for unknown indication
     Route: 065

REACTIONS (11)
  - Neurological decompensation [Fatal]
  - Dysarthria [Fatal]
  - Metastases to meninges [Fatal]
  - Hyperproteinaemia [Fatal]
  - Epilepsy [Fatal]
  - Fall [Fatal]
  - Hypoglycaemia [Fatal]
  - Haematoma [Fatal]
  - Glossopharyngeal nerve paralysis [Fatal]
  - Diplopia [Fatal]
  - Paraesthesia [Fatal]

NARRATIVE: CASE EVENT DATE: 20221201
